FAERS Safety Report 6309944-7 (Version None)
Quarter: 2009Q3

REPORT INFORMATION
  Report Type: 
  Country: None (occurrence: None)
  Receive Date: 20090814
  Receipt Date: 20090806
  Transmission Date: 20100115
  Serious: Yes (Disabling, Other)
  Sender: FDA-Public Use
  Company Number: B0588004A

PATIENT
  Sex: Male

DRUGS (1)
  1. MALARONE [Suspect]
     Indication: MALARIA PROPHYLAXIS
     Dosage: 1TAB PER DAY
     Route: 048
     Dates: start: 20090710, end: 20090711

REACTIONS (4)
  - ACNE [None]
  - ASPHYXIA [None]
  - HYPERHIDROSIS [None]
  - OBSTRUCTIVE AIRWAYS DISORDER [None]
